FAERS Safety Report 10373238 (Version 2)
Quarter: 2014Q3

REPORT INFORMATION
  Report Type: Spontaneous
  Country: US (occurrence: US)
  Receive Date: 20140808
  Receipt Date: 20140808
  Transmission Date: 20150326
  Serious: Yes (Other)
  Sender: FDA-Public Use
  Company Number: US-BRISTOL-MYERS SQUIBB COMPANY-20265534

PATIENT
  Age: 42 Year
  Sex: Female
  Weight: 127 kg

DRUGS (1)
  1. SPRYCEL [Suspect]
     Active Substance: DASATINIB
     Indication: CHRONIC MYELOID LEUKAEMIA
     Route: 048
     Dates: start: 201312

REACTIONS (6)
  - Skin disorder [Unknown]
  - Cough [Recovered/Resolved]
  - Headache [Unknown]
  - Bone pain [Unknown]
  - Chest pain [Unknown]
  - Dyspnoea [Unknown]
